FAERS Safety Report 19996735 (Version 2)
Quarter: 2021Q4

REPORT INFORMATION
  Report Type: Spontaneous
  Country: BR (occurrence: BR)
  Receive Date: 20211026
  Receipt Date: 20211103
  Transmission Date: 20220303
  Serious: No
  Sender: FDA-Public Use
  Company Number: BR-SA-SAC20211026000225

PATIENT
  Age: 63 Year
  Sex: Female
  Weight: 70.5 kg

DRUGS (4)
  1. THYMOGLOBULIN [Suspect]
     Active Substance: LAPINE T-LYMPHOCYTE IMMUNE GLOBULIN
     Indication: Prophylaxis against transplant rejection
     Dosage: 200 MG
     Dates: start: 20210913, end: 20210914
  2. HYDROCORTISONE [Concomitant]
     Active Substance: HYDROCORTISONE
     Dosage: 300 MG
     Route: 042
     Dates: start: 20210913
  3. CEFAZOLIN [Concomitant]
     Active Substance: CEFAZOLIN
     Dosage: 1 G, TID
     Route: 042
     Dates: start: 20210913, end: 20210914
  4. DIPYRONE [Concomitant]
     Active Substance: DIPYRONE
     Dosage: 500 MG
     Route: 042
     Dates: start: 20210913, end: 20210914

REACTIONS (1)
  - Hypotension [Unknown]
